FAERS Safety Report 20796750 (Version 1)
Quarter: 2022Q2

REPORT INFORMATION
  Report Type: Spontaneous
  Country: JP (occurrence: JP)
  Receive Date: 20220506
  Receipt Date: 20220506
  Transmission Date: 20220721
  Serious: Yes (Other)
  Sender: FDA-Public Use
  Company Number: JP-GUERBET-JP-20220054

PATIENT
  Age: 32 Year
  Sex: Female

DRUGS (1)
  1. LIPIODOL [Suspect]
     Active Substance: ETHIODIZED OIL
     Indication: Hysterosalpingogram
     Route: 065

REACTIONS (3)
  - Threatened uterine rupture [Unknown]
  - Product residue present [Unknown]
  - Maternal exposure before pregnancy [Unknown]
